FAERS Safety Report 5812616-6 (Version None)
Quarter: 2008Q3

REPORT INFORMATION
  Report Type: 
  Country: None (occurrence: None)
  Receive Date: 20080714
  Receipt Date: 20080714
  Transmission Date: 20090109
  Serious: No
  Sender: FDA-Public Use
  Company Number: None

PATIENT
  Age: 49 Year
  Sex: Female
  Weight: 104.3273 kg

DRUGS (2)
  1. LEVAQUIN [Suspect]
     Indication: ABSCESS
     Dosage: 500 MG DAILY PO
     Route: 048
     Dates: start: 20080704, end: 20080711
  2. LEVAQUIN [Suspect]
     Indication: CATHETER RELATED COMPLICATION
     Dosage: 500 MG DAILY PO
     Route: 048
     Dates: start: 20080704, end: 20080711

REACTIONS (9)
  - ARTHRALGIA [None]
  - ARTHROPATHY [None]
  - BACK PAIN [None]
  - FEELING ABNORMAL [None]
  - GAIT DISTURBANCE [None]
  - IMPAIRED WORK ABILITY [None]
  - PAIN IN EXTREMITY [None]
  - PHARYNGEAL OEDEMA [None]
  - SENSORY DISTURBANCE [None]
